FAERS Safety Report 8356351-1 (Version None)
Quarter: 2012Q2

REPORT INFORMATION
  Report Type: 
  Country: None (occurrence: None)
  Receive Date: 20120514
  Receipt Date: 20120504
  Transmission Date: 20120825
  Serious: No
  Sender: FDA-Public Use
  Company Number: US-B.I. PHARMACEUTICALS,INC./RIDGEFIELD-2012-BP-10319BP

PATIENT
  Sex: Female

DRUGS (5)
  1. PREDNISONE TAB [Suspect]
     Indication: PHLEBITIS
  2. ASPIRIN [Suspect]
     Indication: PHLEBITIS
  3. MOBIC [Suspect]
     Indication: PHLEBITIS
  4. CELEBREX [Suspect]
  5. NAPROXEN (ALEVE) [Suspect]
     Indication: PHLEBITIS

REACTIONS (2)
  - DRUG INEFFECTIVE [None]
  - ABDOMINAL DISCOMFORT [None]
